FAERS Safety Report 8023324-8 (Version None)
Quarter: 2012Q1

REPORT INFORMATION
  Report Type: 
  Country: None (occurrence: None)
  Receive Date: 20120104
  Receipt Date: 20111229
  Transmission Date: 20120608
  Serious: Yes (Death, Hospitalization)
  Sender: FDA-Public Use
  Company Number: ES-ROCHE-1026495

PATIENT
  Sex: Female
  Weight: 62 kg

DRUGS (9)
  1. XELODA [Suspect]
     Indication: BREAST CANCER METASTATIC
     Dosage: LAST DOSE PRIOR TO SAE: ON 01 NOVEMBER 2007, FORM: NOT REPORTED
     Route: 048
     Dates: start: 20070807, end: 20071101
  2. PRIMPERAN (SPAIN) [Concomitant]
     Dates: start: 20070830
  3. ENALAPRIL MALEATE [Concomitant]
  4. FORTECORTIN [Concomitant]
  5. LORAZEPAM [Concomitant]
  6. OMEPRAZOLE [Concomitant]
  7. ADOLONTA [Concomitant]
  8. DUPHALAC [Concomitant]
  9. NOLOTIL [Concomitant]

REACTIONS (1)
  - INTESTINAL OBSTRUCTION [None]
